FAERS Safety Report 5848467-6 (Version None)
Quarter: 2008Q3

REPORT INFORMATION
  Report Type: 
  Country: None (occurrence: None)
  Receive Date: 20080814
  Receipt Date: 20080731
  Transmission Date: 20090109
  Serious: Yes (Hospitalization)
  Sender: FDA-Public Use
  Company Number: 02100-JPN-07-0677

PATIENT
  Age: 76 Year
  Sex: Female

DRUGS (14)
  1. PLETAL [Suspect]
     Indication: CEREBRAL INFARCTION
     Dosage: 100 MG, BID ORAL
     Route: 048
     Dates: start: 20070824, end: 20080319
  2. PLAVIX [Suspect]
     Indication: CEREBRAL INFARCTION
     Dosage: 75 MG, QD ORAL
     Route: 048
     Dates: start: 20070824, end: 20080319
  3. ASPIRIN [Concomitant]
  4. CARVEDILOL [Concomitant]
  5. CITICOLINE (CITICOLINE) [Concomitant]
  6. ATORVASTATIN CALCIUM [Concomitant]
  7. MAGNESIUM OXIDE (MAGNESIUM OXIDE) [Concomitant]
  8. CALCIUM POLYCARBOPHIL (CALCIUM POLYCARBOPHIL) [Concomitant]
  9. ANYTAL (MADE BY AHN-GOOK) (ANYTAL (MADE  BY AHN-GOOK) TABLET [Concomitant]
  10. EPROSARTAN (EPROSARTAN) [Concomitant]
  11. RANITIDINE [Concomitant]
  12. CALCIUM CARBONATE (CALCIUM CARBONATE) [Concomitant]
  13. CHOLECALCIFEROL (CHOLECALCIFEROL) [Concomitant]
  14. RISEDRONATE SODIUM [Concomitant]

REACTIONS (8)
  - ASTHENIA [None]
  - CEREBRAL INFARCTION [None]
  - COMPRESSION FRACTURE [None]
  - DIZZINESS [None]
  - DYSARTHRIA [None]
  - FALL [None]
  - REFUSAL OF TREATMENT BY PATIENT [None]
  - THORACIC VERTEBRAL FRACTURE [None]
